FAERS Safety Report 4791759-2 (Version None)
Quarter: 2005Q3

REPORT INFORMATION
  Report Type: 
  Country: None (occurrence: None)
  Receive Date: 20050920
  Receipt Date: 20050727
  Transmission Date: 20060218
  Serious: No
  Sender: FDA-Public Use
  Company Number: 200511624BBE

PATIENT
  Sex: Female

DRUGS (1)
  1. PROLASTIN [Suspect]
     Dosage: .., Q1MON, INTRAVENOUS
     Route: 042
     Dates: start: 20050627

REACTIONS (2)
  - CHILLS [None]
  - PYREXIA [None]
